FAERS Safety Report 20557534 (Version 1)
Quarter: 2022Q1

REPORT INFORMATION
  Report Type: Spontaneous
  Country: CN (occurrence: None)
  Receive Date: 20220307
  Receipt Date: 20220307
  Transmission Date: 20220423
  Serious: Yes (Other)
  Sender: FDA-Public Use
  Company Number: CN-ROCHE-3035928

PATIENT
  Age: 50 Year
  Sex: Male

DRUGS (8)
  1. TECENTRIQ [Suspect]
     Active Substance: ATEZOLIZUMAB
     Indication: Small cell lung cancer
     Dosage: FOR 6 CYCLE
     Route: 065
     Dates: start: 202006, end: 202010
  2. TECENTRIQ [Suspect]
     Active Substance: ATEZOLIZUMAB
     Route: 065
     Dates: start: 202201
  3. ETOPOSIDE [Concomitant]
     Active Substance: ETOPOSIDE
     Indication: Small cell lung cancer
     Dosage: FOR 6 CYCLES
     Route: 065
     Dates: start: 201812, end: 201905
  4. ETOPOSIDE [Concomitant]
     Active Substance: ETOPOSIDE
     Dosage: FOR 6 CYCLES
     Route: 065
     Dates: start: 202006, end: 202010
  5. CISPLATIN [Concomitant]
     Active Substance: CISPLATIN
     Indication: Small cell lung cancer
     Dosage: FOR 6 CYCLES
     Route: 065
     Dates: start: 201812, end: 201905
  6. CATEQUENTINIB [Concomitant]
     Active Substance: CATEQUENTINIB
     Indication: Small cell lung cancer
     Dosage: FOR 7 MONTHS
     Route: 065
     Dates: start: 201911, end: 202006
  7. CATEQUENTINIB [Concomitant]
     Active Substance: CATEQUENTINIB
     Dates: start: 202201
  8. CARBOPLATIN [Concomitant]
     Active Substance: CARBOPLATIN
     Indication: Small cell lung cancer
     Dosage: FOR 6 CYCLES
     Route: 065
     Dates: start: 202006, end: 202010

REACTIONS (1)
  - Interstitial lung disease [Unknown]
